FAERS Safety Report 4448918-8 (Version None)
Quarter: 2004Q3

REPORT INFORMATION
  Report Type: 
  Country: None (occurrence: None)
  Receive Date: 20040909
  Receipt Date: 20040902
  Transmission Date: 20050211
  Serious: Yes (Other)
  Sender: FDA-Public Use
  Company Number: 200420445BWH

PATIENT
  Age: 65 Year
  Sex: Female
  Weight: 81.1939 kg

DRUGS (10)
  1. AVELOX [Suspect]
     Indication: UPPER RESPIRATORY TRACT INFECTION
     Dosage: 400 MG, QD, ORAL
     Route: 048
     Dates: start: 20040625, end: 20040629
  2. CALCIUM [Concomitant]
  3. NASACORT [Concomitant]
  4. SYNTHROID [Concomitant]
  5. SEREVENT [Concomitant]
  6. FLOVENT [Concomitant]
  7. ESTRACE [Concomitant]
  8. ENALAPRIL [Concomitant]
  9. ALLEGRA [Concomitant]
  10. CELEXA [Concomitant]

REACTIONS (5)
  - ANAEMIA [None]
  - ASTHENIA [None]
  - BLOOD CALCIUM INCREASED [None]
  - NAUSEA [None]
  - RENAL FAILURE ACUTE [None]
